FAERS Safety Report 18536410 (Version 1)
Quarter: 2020Q4

REPORT INFORMATION
  Report Type: Spontaneous
  Country: US (occurrence: US)
  Receive Date: 20201123
  Receipt Date: 20201123
  Transmission Date: 20210114
  Serious: No
  Sender: FDA-Public Use
  Company Number: US-PFIZER INC-2020459442

PATIENT
  Age: 58 Year
  Sex: Female

DRUGS (2)
  1. ADVIL LIQUI-GELS [Suspect]
     Active Substance: IBUPROFEN
     Dosage: TOOK 1 THIS MORNING AT 6:31 AM
     Dates: start: 20201118
  2. ADVIL LIQUI-GELS [Suspect]
     Active Substance: IBUPROFEN
     Dosage: 2 DF, DAILY(ON MONDAY I TOOK 2 AND 2 YESTERDAY)
     Dates: start: 20201116, end: 20201117

REACTIONS (5)
  - Malaise [Unknown]
  - Tremor [Unknown]
  - Memory impairment [Unknown]
  - Discomfort [Unknown]
  - Nausea [Unknown]

NARRATIVE: CASE EVENT DATE: 202011
